FAERS Safety Report 4886024-9 (Version None)
Quarter: 2006Q1

REPORT INFORMATION
  Report Type: 
  Country: None (occurrence: None)
  Receive Date: 20060117
  Receipt Date: 20051103
  Transmission Date: 20060701
  Serious: Yes (Other)
  Sender: FDA-Public Use
  Company Number: 2005-CZ-00978

PATIENT
  Age: 38 Year
  Sex: Male

DRUGS (3)
  1. PREDNISOLONE TAB [Suspect]
     Indication: LUNG TRANSPLANT
  2. TACROLIMUS [Suspect]
     Indication: LUNG TRANSPLANT
  3. MYCOPHENOLATE MOFETIL [Suspect]
     Indication: LUNG TRANSPLANT

REACTIONS (13)
  - ALVEOLITIS ALLERGIC [None]
  - BRONCHOSCOPY ABNORMAL [None]
  - CHEST X-RAY ABNORMAL [None]
  - CHILLS [None]
  - COMPLICATIONS OF TRANSPLANTED LUNG [None]
  - EPSTEIN-BARR VIRUS INFECTION [None]
  - LUNG CONSOLIDATION [None]
  - LUNG DISORDER [None]
  - LUNG NEOPLASM [None]
  - LUNG TRANSPLANT REJECTION [None]
  - PYREXIA [None]
  - SEPSIS [None]
  - THERAPY NON-RESPONDER [None]
